FAERS Safety Report 6456509-2 (Version None)
Quarter: 2009Q4

REPORT INFORMATION
  Report Type: 
  Country: None (occurrence: None)
  Receive Date: 20091120
  Receipt Date: 20091109
  Transmission Date: 20100525
  Serious: Yes (Other)
  Sender: FDA-Public Use
  Company Number: 232870J09USA

PATIENT
  Age: 56 Year
  Sex: Female

DRUGS (4)
  1. REBIF [Suspect]
     Indication: MULTIPLE SCLEROSIS
     Dosage: 44 MCG, 3 IN 1 WEEKS, SUBCUTANEOUS
     Route: 058
     Dates: start: 20080314
  2. ACCUPRIL [Concomitant]
  3. TOPROL XL ((METORPOLOL SUCCINATE) [Concomitant]
  4. MAXZIDE [Concomitant]

REACTIONS (1)
  - MORTON'S NEUROMA [None]
